FAERS Safety Report 9510294 (Version 1)
Quarter: 2013Q3

REPORT INFORMATION
  Report Type: Spontaneous
  Country: US (occurrence: US)
  Receive Date: 20130909
  Receipt Date: 20130909
  Transmission Date: 20140515
  Serious: No
  Sender: FDA-Public Use
  Company Number: US-BRISTOL-MYERS SQUIBB COMPANY-17469875

PATIENT
  Age: 32 Year
  Sex: Female

DRUGS (1)
  1. ABILIFY [Suspect]

REACTIONS (3)
  - Pregnancy [Recovered/Resolved]
  - Normal newborn [Unknown]
  - Lactation disorder [Recovered/Resolved]
